FAERS Safety Report 7972087-0 (Version None)
Quarter: 2011Q4

REPORT INFORMATION
  Report Type: 
  Country: None (occurrence: None)
  Receive Date: 20111212
  Receipt Date: 20111205
  Transmission Date: 20120403
  Serious: Yes (Other)
  Sender: FDA-Public Use
  Company Number: CA-ASTRAZENECA-2011SE28695

PATIENT
  Age: 58 Year
  Sex: Male
  Weight: 100 kg

DRUGS (4)
  1. CRESTOR [Suspect]
     Route: 048
     Dates: start: 20110101
  2. CRESTOR [Suspect]
     Route: 048
     Dates: start: 20080101, end: 20110101
  3. CRESTOR [Suspect]
     Route: 048
     Dates: start: 20110101
  4. COENZYME Q10 [Concomitant]

REACTIONS (4)
  - MYALGIA [None]
  - MUSCULAR WEAKNESS [None]
  - EXERCISE TOLERANCE DECREASED [None]
  - FATIGUE [None]
